FAERS Safety Report 25627757 (Version 1)
Quarter: 2025Q3

REPORT INFORMATION
  Report Type: Spontaneous
  Country: EU (occurrence: None)
  Receive Date: 20250731
  Receipt Date: 20250731
  Transmission Date: 20251020
  Serious: Yes (Other)
  Sender: ACS DOBFAR
  Company Number: EU-MLMSERVICE-20250721-PI586383-00089-1

PATIENT
  Age: 66 Year
  Sex: Male

DRUGS (1)
  1. CEFTRIAXONE [Suspect]
     Active Substance: CEFTRIAXONE
     Indication: Whipple^s disease
     Dosage: 2G ONCE A DAY FOR 14 DAYS
     Dates: start: 202207

REACTIONS (2)
  - Jarisch-Herxheimer reaction [Recovered/Resolved]
  - Off label use [Unknown]

NARRATIVE: CASE EVENT DATE: 20220701
